FAERS Safety Report 7124637-4 (Version None)
Quarter: 2010Q4

REPORT INFORMATION
  Report Type: 
  Country: None (occurrence: None)
  Receive Date: 20101122
  Receipt Date: 20101122
  Transmission Date: 20110411
  Serious: Yes (Hospitalization, Disabling)
  Sender: FDA-Public Use
  Company Number: None

PATIENT
  Age: 34 Year
  Sex: Female
  Weight: 81.6475 kg

DRUGS (1)
  1. PREVACID [Suspect]
     Indication: GASTROOESOPHAGEAL REFLUX DISEASE
     Dosage: 30MG 1-2 PILLS DAILY PO
     Route: 048
     Dates: start: 20030101, end: 20091125

REACTIONS (3)
  - ANKLE FRACTURE [None]
  - FALL [None]
  - OSTEOPOROSIS [None]
